FAERS Safety Report 25585530 (Version 2)
Quarter: 2025Q3

REPORT INFORMATION
  Report Type: Report from Study
  Country: PE (occurrence: PE)
  Receive Date: 20250721
  Receipt Date: 20250814
  Transmission Date: 20251020
  Serious: Yes (Hospitalization, Other)
  Sender: BAYER HEALTHCARE PHARMACEUTICALS INC.
  Company Number: PE-BAYER-2025A094838

PATIENT
  Age: 23 Year
  Sex: Female

DRUGS (4)
  1. MOXIFLOXACIN [Suspect]
     Active Substance: MOXIFLOXACIN
     Indication: Tuberculosis
     Route: 048
  2. ISONIAZID [Suspect]
     Active Substance: ISONIAZID
     Route: 048
  3. RIFAMPIN [Suspect]
     Active Substance: RIFAMPIN
     Route: 048
  4. LINEZOLID [Suspect]
     Active Substance: LINEZOLID
     Route: 048

REACTIONS (3)
  - Drug reaction with eosinophilia and systemic symptoms [Recovered/Resolved]
  - Product use in unapproved indication [None]
  - Product prescribing issue [None]

NARRATIVE: CASE EVENT DATE: 20220101
